FAERS Safety Report 17558886 (Version 8)
Quarter: 2020Q2

REPORT INFORMATION
  Report Type: Spontaneous
  Country: US (occurrence: US)
  Receive Date: 20200319
  Receipt Date: 20200614
  Transmission Date: 20200713
  Serious: Yes (Other)
  Sender: FDA-Public Use
  Company Number: US-BIOGEN-2020BI00850633

PATIENT
  Age: 56 Year
  Sex: Female

DRUGS (4)
  1. GABAPENTIN. [Concomitant]
     Active Substance: GABAPENTIN
     Indication: PRODUCT USED FOR UNKNOWN INDICATION
     Route: 065
  2. TYSABRI [Suspect]
     Active Substance: NATALIZUMAB
     Indication: MULTIPLE SCLEROSIS
     Dosage: INFUSED OVER 1 HOUR
     Route: 042
     Dates: start: 20121105
  3. TYSABRI [Suspect]
     Active Substance: NATALIZUMAB
     Route: 042
  4. CARBAMAZEPINE. [Concomitant]
     Active Substance: CARBAMAZEPINE
     Indication: PRODUCT USED FOR UNKNOWN INDICATION
     Route: 065

REACTIONS (9)
  - Product administration error [Unknown]
  - Memory impairment [Unknown]
  - Anaphylactoid reaction [Not Recovered/Not Resolved]
  - Incorrect drug administration rate [Unknown]
  - Disturbance in attention [Unknown]
  - Vein rupture [Unknown]
  - Chills [Recovered/Resolved]
  - Headache [Recovered/Resolved]
  - Feeling cold [Unknown]

NARRATIVE: CASE EVENT DATE: 202003
